FAERS Safety Report 9641295 (Version 1)
Quarter: 2013Q4

REPORT INFORMATION
  Report Type: Spontaneous
  Country: FR (occurrence: FR)
  Receive Date: 20131023
  Receipt Date: 20131023
  Transmission Date: 20140711
  Serious: Yes (Other)
  Sender: FDA-Public Use
  Company Number: FR-SA-2013SA104638

PATIENT
  Age: 75 Year
  Sex: Female

DRUGS (6)
  1. CALCIPARINE [Suspect]
     Indication: ATRIAL FIBRILLATION
     Route: 058
     Dates: start: 20130901, end: 20130905
  2. PLAVIX [Suspect]
     Indication: PRODUCT USED FOR UNKNOWN INDICATION
     Route: 048
     Dates: end: 20130905
  3. PREVISCAN [Suspect]
     Indication: ATRIAL FIBRILLATION
     Route: 048
     Dates: start: 20130902, end: 20130905
  4. SEROPRAM [Suspect]
     Indication: DEPRESSED MOOD
     Route: 042
     Dates: start: 20130903, end: 20130905
  5. EUPANTOL [Concomitant]
  6. LANTUS [Concomitant]
     Indication: DIABETES MELLITUS

REACTIONS (2)
  - Activated partial thromboplastin time [Recovered/Resolved]
  - Hypothrombinaemia [Recovered/Resolved]
